FAERS Safety Report 14638614 (Version 1)
Quarter: 2018Q1

REPORT INFORMATION
  Report Type: Other
  Country: TW (occurrence: TW)
  Receive Date: 20180314
  Receipt Date: 20180314
  Transmission Date: 20180509
  Serious: Yes (Other)
  Sender: FDA-Public Use
  Company Number: TW-CIPHER-2018-TW-000001

PATIENT
  Age: 33 Year
  Sex: Female

DRUGS (2)
  1. FENOFIBRATE. [Suspect]
     Active Substance: FENOFIBRATE
     Indication: PRODUCT USED FOR UNKNOWN INDICATION
     Dosage: 200MG, QD
  2. SILYMARIN [Suspect]
     Active Substance: DIETARY SUPPLEMENT\HERBALS\MILK THISTLE
     Indication: PRODUCT USED FOR UNKNOWN INDICATION
     Dosage: 150MG, QD

REACTIONS (5)
  - Rash papular [Unknown]
  - Rash erythematous [Unknown]
  - Photosensitivity reaction [Unknown]
  - Pruritus [Unknown]
  - Burning sensation [Unknown]
